FAERS Safety Report 5781609-X (Version None)
Quarter: 2008Q2

REPORT INFORMATION
  Report Type: 
  Country: None (occurrence: None)
  Receive Date: 20080623
  Receipt Date: 20080610
  Transmission Date: 20081010
  Serious: Yes (Hospitalization, Other)
  Sender: FDA-Public Use
  Company Number: US-AMGEN-US286105

PATIENT
  Sex: Female

DRUGS (21)
  1. EPOGEN [Suspect]
     Indication: RENAL FAILURE CHRONIC
  2. ALTACE [Concomitant]
  3. ASPIRIN [Concomitant]
  4. COREG [Concomitant]
  5. DIOVAN [Concomitant]
  6. DOCUSATE [Concomitant]
  7. DYNACIRC [Concomitant]
  8. HYDRALAZINE HCL [Concomitant]
  9. ISOSORBIDE DINITRATE [Concomitant]
  10. LEVOTHYROXINE SODIUM [Concomitant]
  11. LIDODERM PATCH (ENDO PHARMACEUTICALS) [Concomitant]
  12. OMEPRAZOLE [Concomitant]
  13. MIRALAX [Concomitant]
  14. PRAVASTATIN [Concomitant]
  15. VITAMIN CAP [Concomitant]
  16. EFFEXOR [Concomitant]
  17. TYLENOL [Concomitant]
  18. XANAX [Concomitant]
  19. SODIUM PHOSPHATE DIBASIC/SODIUM PHOSPHATE MONOBASIC [Concomitant]
  20. VICODIN [Concomitant]
  21. MILK OF MAGNESIA [Concomitant]

REACTIONS (2)
  - IMMUNOGLOBULINS ABNORMAL [None]
  - THERAPEUTIC RESPONSE DECREASED [None]
